FAERS Safety Report 8964378 (Version 1)
Quarter: 2012Q4

REPORT INFORMATION
  Report Type: Report from Study
  Country: CA (occurrence: CA)
  Receive Date: 20121213
  Receipt Date: 20121213
  Transmission Date: 20130627
  Serious: Yes (Other)
  Sender: FDA-Public Use
  Company Number: CA-ROCHE-GNE220640

PATIENT
  Age: 36 Year
  Sex: Female
  Weight: 144.75 kg

DRUGS (3)
  1. OMALIZUMAB [Suspect]
     Indication: ASTHMA
     Dosage: 300 mg, single
     Route: 058
     Dates: start: 20051112
  2. SYMBICORT [Concomitant]
     Indication: ASTHMA
     Route: 065
  3. NASONEX [Concomitant]
     Indication: ASTHMA

REACTIONS (20)
  - Throat tightness [Recovered/Resolved]
  - Chest discomfort [Unknown]
  - Headache [Unknown]
  - Streptococcal infection [Unknown]
  - Dizziness [Unknown]
  - Nasopharyngitis [Unknown]
  - Nasal congestion [Unknown]
  - Sneezing [Unknown]
  - Oropharyngeal pain [Unknown]
  - Lacrimation increased [Unknown]
  - Sinusitis [Unknown]
  - Conjunctivitis [Unknown]
  - Dysphonia [Unknown]
  - Scarlet fever [Unknown]
  - Bronchitis [Unknown]
  - Productive cough [Unknown]
  - Rhinorrhoea [Unknown]
  - Erythema [Unknown]
  - Pyrexia [Unknown]
  - Fatigue [Unknown]
